FAERS Safety Report 8545503-3 (Version None)
Quarter: 2012Q3

REPORT INFORMATION
  Report Type: 
  Country: None (occurrence: None)
  Receive Date: 20120727
  Receipt Date: 20111026
  Transmission Date: 20120928
  Serious: No
  Sender: FDA-Public Use
  Company Number: US-ASTRAZENECA-2011SE64956

PATIENT
  Age: 54 Year
  Sex: Male
  Weight: 95.3 kg

DRUGS (10)
  1. SEROQUEL [Suspect]
     Indication: BIPOLAR II DISORDER
     Route: 048
  2. SEROQUEL [Suspect]
     Route: 048
     Dates: start: 20110803
  3. BLOOD PRESSURE MEDICINE [Concomitant]
  4. SEROQUEL [Suspect]
     Indication: DEPRESSION
     Route: 048
  5. SEROQUEL [Suspect]
     Dosage: 25-50MG
     Route: 048
  6. SEROQUEL [Suspect]
     Dosage: 25-50MG
     Route: 048
  7. CHOLESTEROL MEDICINE [Concomitant]
  8. SEROQUEL [Suspect]
     Route: 048
     Dates: start: 20110803
  9. PRILOSEC [Concomitant]
     Indication: GASTROOESOPHAGEAL REFLUX DISEASE
  10. LAMICTAL [Concomitant]

REACTIONS (4)
  - INSOMNIA [None]
  - SOMNOLENCE [None]
  - DRUG DOSE OMISSION [None]
  - DRUG INEFFECTIVE [None]
